FAERS Safety Report 4852060-1 (Version None)
Quarter: 2005Q4

REPORT INFORMATION
  Report Type: 
  Country: None (occurrence: None)
  Receive Date: 20051213
  Receipt Date: 20010518
  Transmission Date: 20060501
  Serious: Yes (Hospitalization, Disabling)
  Sender: FDA-Public Use
  Company Number: ES-ROCHE-260960

PATIENT
  Age: 32 Year
  Sex: Male
  Weight: 66.5 kg

DRUGS (10)
  1. PEG-INTERFERON ALFA 2A (RO 25-8310) [Suspect]
     Route: 058
     Dates: start: 20000719, end: 20010508
  2. PEG-INTERFERON ALFA 2A (RO 25-8310) [Suspect]
     Route: 058
     Dates: start: 20010521, end: 20010619
  3. PLACEBO [Suspect]
     Dosage: WITH FOOD.
     Route: 048
     Dates: start: 20000719, end: 20010508
  4. PLACEBO [Suspect]
     Dosage: WITH FOOD.
     Route: 048
     Dates: start: 20010521, end: 20010619
  5. 3TC [Concomitant]
     Dates: start: 19970901
  6. D4T [Concomitant]
     Dates: start: 19970901
  7. SQV [Concomitant]
     Dosage: TOTAL DAILY DOSE REPORTED AS 1800, NO UNITS OF MEASURE PROVIDED.
     Dates: start: 19970901
  8. INVIRASE [Concomitant]
     Dates: start: 19970501, end: 20010921
  9. OMEPRAZOLE [Concomitant]
     Dates: start: 20010719
  10. FENOFIBRATO [Concomitant]
     Dates: start: 20010402, end: 20010921

REACTIONS (10)
  - ACTIVATED PARTIAL THROMBOPLASTIN TIME PROLONGED [None]
  - BLOOD ALBUMIN DECREASED [None]
  - BLOOD BILIRUBIN INCREASED [None]
  - DEAFNESS [None]
  - GASTROINTESTINAL HAEMORRHAGE [None]
  - HEPATIC CIRRHOSIS [None]
  - HEPATIC FAILURE [None]
  - INTERNATIONAL NORMALISED RATIO INCREASED [None]
  - PNEUMONIA [None]
  - SPLENOMEGALY [None]
